FAERS Safety Report 22045848 (Version 2)
Quarter: 2023Q1

REPORT INFORMATION
  Report Type: Spontaneous
  Country: IQ (occurrence: None)
  Receive Date: 20230228
  Receipt Date: 20230315
  Transmission Date: 20230417
  Serious: Yes (Death, Other)
  Sender: FDA-Public Use
  Company Number: IQ-ROCHE-3290863

PATIENT
  Age: 32 Year
  Sex: Male
  Weight: 77 kg

DRUGS (1)
  1. HEMLIBRA [Suspect]
     Active Substance: EMICIZUMAB-KXWH
     Indication: Factor VIII deficiency
     Route: 058
     Dates: start: 20200504

REACTIONS (5)
  - Cerebral haemorrhage [Fatal]
  - Head injury [Unknown]
  - Fall [Unknown]
  - Blood pressure increased [Unknown]
  - Coma [Unknown]
